FAERS Safety Report 11549854 (Version 1)
Quarter: 2015Q3

REPORT INFORMATION
  Report Type: Spontaneous
  Country: US (occurrence: US)
  Receive Date: 20150924
  Receipt Date: 20150924
  Transmission Date: 20151125
  Serious: No
  Sender: FDA-Public Use
  Company Number: US-INCYTE CORPORATION-2015IN002331

PATIENT
  Age: 70 Year
  Sex: Female

DRUGS (19)
  1. OMEGA 3                            /01334101/ [Concomitant]
     Active Substance: OMEGA-3 FATTY ACIDS
  2. LYSINE [Concomitant]
     Active Substance: LYSINE
  3. JAKAFI [Suspect]
     Active Substance: RUXOLITINIB
     Dosage: 2.5 MG (5 MG HALF TABLET), BID
     Route: 048
     Dates: start: 2015
  4. HYDROXYUREA. [Concomitant]
     Active Substance: HYDROXYUREA
  5. BUFFERIN                           /00009201/ [Concomitant]
  6. VITAMIN D3 [Concomitant]
     Active Substance: CHOLECALCIFEROL
  7. CARNITINE [Concomitant]
     Active Substance: CARNITINE
  8. LEVOTHYROXINE. [Concomitant]
     Active Substance: LEVOTHYROXINE
  9. QUERCETIN [Concomitant]
     Active Substance: QUERCETIN
  10. JAKAFI [Suspect]
     Active Substance: RUXOLITINIB
     Indication: MYELOFIBROSIS
     Dosage: 5 MG, BID
     Dates: start: 20140303
  11. METOPROLOL [Concomitant]
     Active Substance: METOPROLOL
  12. MULTIVITAMIN                       /00097801/ [Concomitant]
     Active Substance: VITAMINS
  13. ECOTRIN [Concomitant]
     Active Substance: ASPIRIN
  14. POLICOSANOL [Concomitant]
  15. BROMELAIN [Concomitant]
     Active Substance: BROMELAINS
  16. UBIQUINOL [Concomitant]
     Active Substance: UBIQUINOL
  17. AMLODIPINE [Concomitant]
     Active Substance: AMLODIPINE BESYLATE
  18. BIOTIN [Concomitant]
     Active Substance: BIOTIN
  19. GLUTAMINE [Concomitant]
     Active Substance: GLUTAMINE

REACTIONS (5)
  - Drug dose omission [Unknown]
  - Haemoglobin decreased [Unknown]
  - Alopecia [Unknown]
  - Wrong technique in product usage process [Unknown]
  - Pruritus [Unknown]

NARRATIVE: CASE EVENT DATE: 20150521
